FAERS Safety Report 10190739 (Version 2)
Quarter: 2014Q2

REPORT INFORMATION
  Report Type: Spontaneous
  Country: JP (occurrence: JP)
  Receive Date: 20140523
  Receipt Date: 20140523
  Transmission Date: 20141212
  Serious: Yes (Hospitalization, Other)
  Sender: FDA-Public Use
  Company Number: JP-009507513-1403JPN001335

PATIENT
  Age: 62 Year
  Sex: Female

DRUGS (4)
  1. ESLAX [Suspect]
     Indication: NEUROMUSCULAR BLOCKING THERAPY
     Dosage: 50 MG, ONCE DAILY
     Route: 042
     Dates: start: 20140228, end: 20140228
  2. MUSCULAX [Concomitant]
     Dosage: UNK, DAILY DOSAGE/DOSE UNKNOWN
     Route: 042
  3. DIPRIVAN [Concomitant]
     Dosage: UNK, DAILY DOSE/DOSAGE UNKNOWN
     Route: 051
     Dates: start: 20140228
  4. ULTIVA [Concomitant]
     Dosage: UNK, DAILY DOSE/DOSAGE UNKNOWN
     Route: 051
     Dates: start: 20140228

REACTIONS (2)
  - Anaphylactic shock [Recovered/Resolved]
  - Endotracheal intubation [Recovered/Resolved]
